FAERS Safety Report 20793787 (Version 1)
Quarter: 2022Q2

REPORT INFORMATION
  Report Type: Spontaneous
  Country: US (occurrence: US)
  Receive Date: 20220506
  Receipt Date: 20220506
  Transmission Date: 20220720
  Serious: No
  Sender: FDA-Public Use
  Company Number: US-EPICPHARMA-US-2022EPCSPO00252

PATIENT
  Age: 53 Year
  Sex: Female

DRUGS (4)
  1. FUROSEMIDE [Suspect]
     Active Substance: FUROSEMIDE
     Indication: Product used for unknown indication
     Route: 065
     Dates: start: 20220404
  2. ENTRESTO [Suspect]
     Active Substance: SACUBITRIL\VALSARTAN
     Indication: Product used for unknown indication
     Dosage: 24/26 MG
     Route: 048
     Dates: start: 20220404
  3. CARVEDILOL [Suspect]
     Active Substance: CARVEDILOL
     Indication: Product used for unknown indication
     Route: 065
     Dates: start: 20220404
  4. SPIRONOLACTONE [Suspect]
     Active Substance: SPIRONOLACTONE
     Indication: Product used for unknown indication
     Route: 065
     Dates: start: 20220404

REACTIONS (5)
  - Amnesia [Unknown]
  - Insomnia [Unknown]
  - Chest pain [Unknown]
  - Orthostatic hypotension [Unknown]
  - Dizziness [Unknown]
